FAERS Safety Report 18745396 (Version 4)
Quarter: 2021Q2

REPORT INFORMATION
  Report Type: Spontaneous
  Country: US (occurrence: US)
  Receive Date: 20210115
  Receipt Date: 20210504
  Transmission Date: 20210717
  Serious: Yes (Other)
  Sender: FDA-Public Use
  Company Number: US-PFIZER INC-2021025475

PATIENT
  Age: 67 Year
  Sex: Male

DRUGS (4)
  1. MEKTOVI [Suspect]
     Active Substance: BINIMETINIB
     Indication: MALIGNANT MELANOMA
     Dosage: 45 MG, 2X/DAY
     Route: 048
     Dates: start: 202012
  2. BRAFTOVI [Suspect]
     Active Substance: ENCORAFENIB
     Indication: MALIGNANT MELANOMA
     Dosage: 450 MG, 1X/DAY
     Route: 048
     Dates: start: 202012
  3. MEKTOVI [Suspect]
     Active Substance: BINIMETINIB
     Dosage: 45 MG, 2X/DAY
     Dates: start: 20210113
  4. BRAFTOVI [Suspect]
     Active Substance: ENCORAFENIB
     Dosage: 450 MG, 1X/DAY
     Dates: start: 20210113

REACTIONS (13)
  - Blood pressure decreased [Unknown]
  - Influenza [Unknown]
  - Renal impairment [Unknown]
  - Balance disorder [Unknown]
  - Retinal oedema [Recovered/Resolved]
  - Dry skin [Unknown]
  - Skin disorder [Unknown]
  - Pruritus [Unknown]
  - Pigmentation disorder [Unknown]
  - Halo vision [Unknown]
  - Chest wall tumour [Not Recovered/Not Resolved]
  - Dry mouth [Unknown]
  - Blood creatinine increased [Not Recovered/Not Resolved]
